FAERS Safety Report 10008400 (Version 2)
Quarter: 2014Q2

REPORT INFORMATION
  Report Type: Spontaneous
  Country: AU (occurrence: AU)
  Receive Date: 20140313
  Receipt Date: 20140527
  Transmission Date: 20141212
  Serious: Yes (Other)
  Sender: FDA-Public Use
  Company Number: AU-BRISTOL-MYERS SQUIBB COMPANY-20388682

PATIENT
  Age: 74 Year
  Sex: Female

DRUGS (25)
  1. ORENCIA [Suspect]
     Indication: RHEUMATOID ARTHRITIS
     Dosage: FORMULATION:ORENCIA INFUSION SOLUTION?FIRST INFUSION AGAIN ON 24-DEC-2013
     Route: 042
  2. CLOPIDOGREL BISULFATE [Concomitant]
  3. IRBESARTAN TABS 300 MG [Concomitant]
  4. THYROXINE [Concomitant]
  5. SOMAC [Concomitant]
  6. MAGNESIUM ASPARTATE [Concomitant]
  7. OXYCODONE [Concomitant]
  8. PARACETAMOL [Concomitant]
     Dosage: OSTEO
  9. DOTHEP [Concomitant]
     Dosage: DOTHEP 75 75MG TABLET
  10. FOLIC ACID [Concomitant]
  11. BETAMETHASONE VALERATE [Concomitant]
     Dosage: BETNOVATE 1/2 0.05% CREAMN
  12. ENDONE [Concomitant]
     Dosage: ENDONE 5MG TABLET
  13. LIPITOR [Concomitant]
     Dosage: LIPITOR 80MG TABLET
  14. LYRICA [Concomitant]
     Dosage: LYRICA 150MG CAPSULE
  15. MAGMIN [Concomitant]
     Dosage: MAGMIN 500MG TABLET
  16. MEGAFOL [Concomitant]
     Dosage: MEGAFOL 5 5MG TABLET
  17. METHOTREXATE TABS [Concomitant]
  18. MOVICOL [Concomitant]
     Dosage: MOVICOL 13.125G PER SACHET SACHET
  19. NITROLINGUAL SPRAY [Concomitant]
     Dosage: NITROLINGUAL PUMPSPRAY 400MCG/DOSE SPRAY
  20. OROXINE [Concomitant]
     Dosage: OROXINE 0.05MG TABLET;OROXINE 0.1MG TABLET
  21. OXYCONTIN [Concomitant]
     Dosage: OXYCONTIN 20MG SLOW RELEASE TABLETS;40MG SLOW RELEASE TABLETS
  22. PANADOL [Concomitant]
     Dosage: PANADOL OSTEO 665MG TABLET
  23. QUINSUL [Concomitant]
     Dosage: QUINSUL 300MG TABLET
  24. SOMAC [Concomitant]
     Dosage: SOMAC, 40MG TABLET
  25. SYMBICORT [Concomitant]
     Dosage: SYMBICORT 200/6 200MCG;6MCG/DOSE TURBUHALER

REACTIONS (2)
  - Cerebrovascular accident [Recovering/Resolving]
  - Drug ineffective [Unknown]
